FAERS Safety Report 24315425 (Version 1)
Quarter: 2024Q3

REPORT INFORMATION
  Report Type: Spontaneous
  Country: US (occurrence: US)
  Receive Date: 20240913
  Receipt Date: 20240913
  Transmission Date: 20241016
  Serious: No
  Sender: BRISTOL MYERS SQUIBB
  Company Number: US-BRISTOL-MYERS SQUIBB COMPANY-2024-143695

PATIENT
  Age: 59 Year
  Sex: Female

DRUGS (8)
  1. POMALYST [Suspect]
     Active Substance: POMALIDOMIDE
     Indication: Plasma cell myeloma
     Route: 048
  2. ATOVAQUONE [Concomitant]
     Active Substance: ATOVAQUONE
  3. ACYCLOVIR [Concomitant]
     Active Substance: ACYCLOVIR
  4. PEPCID [Concomitant]
     Active Substance: FAMOTIDINE
  5. LORATADINE [Concomitant]
     Active Substance: LORATADINE
     Dosage: LORATADINE ALLERGY RELIE
  6. ONDANSETRON HYDROCHLORIDE [Concomitant]
     Active Substance: ONDANSETRON HYDROCHLORIDE
  7. COMPAZINE [Concomitant]
     Active Substance: PROCHLORPERAZINE MALEATE
  8. DOXYCYCLINE HYCLATE [Concomitant]
     Active Substance: DOXYCYCLINE HYCLATE

REACTIONS (1)
  - Off label use [Unknown]
